FAERS Safety Report 10442223 (Version 2)
Quarter: 2014Q4

REPORT INFORMATION
  Report Type: Spontaneous
  Country: FR (occurrence: FR)
  Receive Date: 20140909
  Receipt Date: 20141020
  Transmission Date: 20150528
  Serious: Yes (Other)
  Sender: FDA-Public Use
  Company Number: FR-DSJP-DSE-2014-120825

PATIENT

DRUGS (4)
  1. ALTEIS [Suspect]
     Active Substance: OLMESARTAN MEDOXOMIL
     Dosage: 10 MG, QD
     Route: 048
     Dates: start: 201409, end: 20140923
  2. ALTEIS [Suspect]
     Active Substance: OLMESARTAN MEDOXOMIL
     Dosage: 20 MG, QD
     Route: 048
     Dates: start: 2014, end: 201409
  3. ALTEIS [Suspect]
     Active Substance: OLMESARTAN MEDOXOMIL
     Indication: HYPERTENSION
     Dosage: UNK
     Route: 048
     Dates: start: 20071211, end: 20090303
  4. ALTEISDUO 20 MG / 25 MG [Suspect]
     Active Substance: HYDROCHLOROTHIAZIDE\OLMESARTAN MEDOXOMIL
     Indication: HYPERTENSION
     Dosage: 20/25 MG, QD
     Route: 048
     Dates: start: 20090304, end: 2014

REACTIONS (7)
  - Hyponatraemia [Recovered/Resolved]
  - Therapeutic response decreased [None]
  - Abdominal pain [None]
  - Weight decreased [Recovered/Resolved]
  - Hypokalaemia [Recovered/Resolved]
  - Diarrhoea [Recovered/Resolved]
  - Abdominal distension [None]

NARRATIVE: CASE EVENT DATE: 201404
